FAERS Safety Report 4933973-9 (Version None)
Quarter: 2006Q1

REPORT INFORMATION
  Report Type: 
  Country: None (occurrence: None)
  Receive Date: 20060303
  Receipt Date: 20060223
  Transmission Date: 20060701
  Serious: Yes (Hospitalization, Other)
  Sender: FDA-Public Use
  Company Number: USA-2004-0016323

PATIENT
  Age: 64 Year
  Sex: Female

DRUGS (18)
  1. OXYCONTIN [Suspect]
     Indication: PAIN
     Dosage: 40 MG, BID, ORAL; SEE IMAGE
     Route: 048
     Dates: start: 20011206
  2. NEURONTIN [Concomitant]
  3. PAXIL [Concomitant]
  4. NORTRIPTYLINE (NORTRIPTYLINE) [Concomitant]
  5. PERCOCET [Concomitant]
  6. VIOXX [Concomitant]
  7. ASPIRIN [Concomitant]
  8. ROXICET [Concomitant]
  9. TYLENOL (CAPLET) [Concomitant]
  10. ATROVENT [Concomitant]
  11. ADVAIR DISKUS (FLUTICASONE PROPIONATE) [Concomitant]
  12. TOPROL-XL [Concomitant]
  13. COMBIVENT [Concomitant]
  14. SOLU-MEDROL [Concomitant]
  15. SENOKOT-S 8.6 MG/50 (SENNOSIDE A+B, DOCUSATE SODIUM) [Concomitant]
  16. SENOKOT [Concomitant]
  17. SEREVENT [Concomitant]
  18. PREDNISONE TAB [Concomitant]

REACTIONS (53)
  - AMNESIA [None]
  - ANXIETY [None]
  - ASTHENIA [None]
  - BACK PAIN [None]
  - BALANCE DISORDER [None]
  - BLOOD PRESSURE INCREASED [None]
  - BRONCHITIS [None]
  - CHEST PAIN [None]
  - CHRONIC OBSTRUCTIVE PULMONARY DISEASE [None]
  - CONDITION AGGRAVATED [None]
  - CONSTIPATION [None]
  - COUGH [None]
  - CYANOSIS [None]
  - DEEP VEIN THROMBOSIS [None]
  - DELUSIONAL DISORDER, UNSPECIFIED TYPE [None]
  - DEPRESSION [None]
  - DIZZINESS [None]
  - DRUG DEPENDENCE [None]
  - DRUG WITHDRAWAL SYNDROME [None]
  - DYSPNOEA [None]
  - DYSURIA [None]
  - ERYTHEMA [None]
  - EUSTACHIAN TUBE DYSFUNCTION [None]
  - HEADACHE [None]
  - HYPERHIDROSIS [None]
  - HYPOXIA [None]
  - JOINT INJURY [None]
  - JOINT SPRAIN [None]
  - LEUKOCYTOSIS [None]
  - LOSS OF CONSCIOUSNESS [None]
  - MALAISE [None]
  - MENTAL STATUS CHANGES [None]
  - NAUSEA [None]
  - NERVOUSNESS [None]
  - OBSESSIVE-COMPULSIVE DISORDER [None]
  - OVARIAN CANCER [None]
  - OVERDOSE [None]
  - PAIN [None]
  - PAIN IN EXTREMITY [None]
  - PARANOIA [None]
  - PNEUMONIA [None]
  - POLLAKIURIA [None]
  - PYREXIA [None]
  - RESPIRATORY FAILURE [None]
  - SINUSITIS [None]
  - SKIN DISCOLOURATION [None]
  - SKIN LESION [None]
  - SKIN ULCER [None]
  - SPEECH DISORDER [None]
  - THINKING ABNORMAL [None]
  - THROMBOCYTOPENIA [None]
  - TREMOR [None]
  - VOMITING [None]
